FAERS Safety Report 13131462 (Version 2)
Quarter: 2017Q3

REPORT INFORMATION
  Report Type: Spontaneous
  Country: US (occurrence: US)
  Receive Date: 20170119
  Receipt Date: 20170731
  Transmission Date: 20171127
  Serious: No
  Sender: FDA-Public Use
  Company Number: US-PFIZER INC-2017022186

PATIENT
  Age: 62 Year
  Sex: Female

DRUGS (1)
  1. PREMARIN [Suspect]
     Active Substance: ESTROGENS, CONJUGATED
     Indication: ATROPHIC VULVOVAGINITIS
     Dosage: APPLY A PEA SIZED AMOUNT TO VAGINAL OPENING 3 TO 4 TIMES PER WEEK
     Route: 067

REACTIONS (2)
  - Weight decreased [Unknown]
  - Product use issue [Unknown]
